FAERS Safety Report 7630899-7 (Version None)
Quarter: 2011Q3

REPORT INFORMATION
  Report Type: 
  Country: None (occurrence: None)
  Receive Date: 20110724
  Receipt Date: 20110713
  Transmission Date: 20111222
  Serious: Yes (Other)
  Sender: FDA-Public Use
  Company Number: JP-BRISTOL-MYERS SQUIBB COMPANY-15457419

PATIENT

DRUGS (1)
  1. ABATACEPT [Suspect]
     Dosage: DAY1:21-AUG-2010 DAY120:18-DEC-2010
     Route: 058

REACTIONS (1)
  - MEDICATION ERROR [None]
